FAERS Safety Report 4370113-1 (Version None)
Quarter: 2004Q2

REPORT INFORMATION
  Report Type: 
  Country: None (occurrence: None)
  Receive Date: 20040527
  Receipt Date: 20040519
  Transmission Date: 20050107
  Serious: Yes (Death)
  Sender: FDA-Public Use
  Company Number: JP_040503094

PATIENT
  Age: 62 Year
  Sex: Male
  Weight: 81 kg

DRUGS (1)
  1. GEMZAR [Suspect]
     Indication: PANCREATIC CARCINOMA
     Dosage: 2000 MG OTHER
     Dates: start: 20030313, end: 20030626

REACTIONS (1)
  - WHITE BLOOD CELL COUNT DECREASED [None]
